FAERS Safety Report 23466884 (Version 2)
Quarter: 2025Q2

REPORT INFORMATION
  Report Type: Report from Study
  Country: US (occurrence: US)
  Receive Date: 20240201
  Receipt Date: 20250515
  Transmission Date: 20250717
  Serious: Yes (Hospitalization, Other)
  Sender: ABBVIE
  Company Number: US-ABBVIE-5607384

PATIENT
  Age: 28 Year
  Sex: Female
  Weight: 80.739 kg

DRUGS (7)
  1. HUMIRA [Suspect]
     Active Substance: ADALIMUMAB
     Indication: Crohn^s disease
     Dosage: END DATE WAS 2022
     Route: 058
     Dates: start: 20170701
  2. HUMIRA [Suspect]
     Active Substance: ADALIMUMAB
     Dosage: START DATE WAS 2022 AND END DATE WAS 2023
     Route: 058
  3. HUMIRA [Suspect]
     Active Substance: ADALIMUMAB
     Route: 058
     Dates: start: 20220701
  4. GABAPENTIN [Concomitant]
     Active Substance: GABAPENTIN
     Indication: Nerve injury
  5. CLONAZEPAM [Concomitant]
     Active Substance: CLONAZEPAM
     Indication: Anxiety
  6. DULOXETINE [Concomitant]
     Active Substance: DULOXETINE
     Indication: Depression
  7. VESICARE [Concomitant]
     Active Substance: SOLIFENACIN SUCCINATE
     Indication: Bladder disorder

REACTIONS (10)
  - Osteoarthritis [Recovered/Resolved]
  - Fall [Not Recovered/Not Resolved]
  - Pain in extremity [Not Recovered/Not Resolved]
  - Hypoaesthesia [Not Recovered/Not Resolved]
  - Patella fracture [Not Recovered/Not Resolved]
  - Ankle fracture [Recovered/Resolved]
  - Multiple sclerosis [Not Recovered/Not Resolved]
  - Drug resistance [Unknown]
  - Hypoaesthesia [Not Recovered/Not Resolved]
  - Peroneal nerve palsy [Not Recovered/Not Resolved]

NARRATIVE: CASE EVENT DATE: 20170101
